FAERS Safety Report 4519115-2 (Version None)
Quarter: 2004Q4

REPORT INFORMATION
  Report Type: 
  Country: None (occurrence: None)
  Receive Date: 20041206
  Receipt Date: 20041029
  Transmission Date: 20050328
  Serious: Yes (Life-Threatening)
  Sender: FDA-Public Use
  Company Number: 200413363JP

PATIENT
  Age: 41 Year
  Sex: Female
  Weight: 30 kg

DRUGS (5)
  1. LASIX [Suspect]
     Indication: INADEQUATE DIET
     Route: 048
  2. KORAC [Suspect]
     Indication: CONSTIPATION
     Route: 048
  3. MEILAX [Concomitant]
     Indication: ANXIETY
     Dosage: DOSE: 1 TABLET
     Route: 048
  4. MEILAX [Concomitant]
     Indication: NERVOUSNESS
     Dosage: DOSE: 1 TABLET
     Route: 048
  5. PUBLONE S [Concomitant]
     Indication: NASOPHARYNGITIS
     Dosage: DOSE: 6 TABLETS/DAY
     Route: 048
     Dates: start: 20040101, end: 20040601

REACTIONS (8)
  - DEHYDRATION [None]
  - DEPRESSED LEVEL OF CONSCIOUSNESS [None]
  - ELECTROLYTE IMBALANCE [None]
  - METABOLIC ALKALOSIS [None]
  - PYREXIA [None]
  - RENAL IMPAIRMENT [None]
  - RESPIRATORY DEPRESSION [None]
  - TREATMENT NONCOMPLIANCE [None]
